FAERS Safety Report 19717750 (Version 2)
Quarter: 2021Q4

REPORT INFORMATION
  Report Type: Spontaneous
  Country: US (occurrence: US)
  Receive Date: 20210818
  Receipt Date: 20211004
  Transmission Date: 20220304
  Serious: No
  Sender: FDA-Public Use
  Company Number: US-PFIZER INC-202100985446

PATIENT
  Age: 83 Year
  Sex: Female
  Weight: 72.57 kg

DRUGS (1)
  1. ESTRING [Suspect]
     Active Substance: ESTRADIOL
     Dosage: UNK
     Route: 067

REACTIONS (3)
  - Device difficult to use [Unknown]
  - Vulvovaginal pain [Unknown]
  - Body height decreased [Unknown]
